FAERS Safety Report 9895084 (Version 1)
Quarter: 2014Q1

REPORT INFORMATION
  Report Type: Spontaneous
  Country: US (occurrence: US)
  Receive Date: 20140213
  Receipt Date: 20140213
  Transmission Date: 20141002
  Serious: No
  Sender: FDA-Public Use
  Company Number: US-BRISTOL-MYERS SQUIBB COMPANY-18594309

PATIENT
  Age: 54 Year
  Sex: Female
  Weight: 77.1 kg

DRUGS (7)
  1. ABATACEPT SUBQ INJECTION 125MG/ML [Suspect]
     Indication: RHEUMATOID ARTHRITIS
     Route: 058
     Dates: start: 20121101
  2. CELEBREX [Concomitant]
  3. CELEXA [Concomitant]
  4. FOLIC ACID [Concomitant]
  5. MEDROL [Concomitant]
  6. METHOTREXATE [Concomitant]
  7. SUMATRIPTAN [Concomitant]

REACTIONS (1)
  - Migraine [Unknown]
